FAERS Safety Report 14654293 (Version 2)
Quarter: 2018Q2

REPORT INFORMATION
  Report Type: Spontaneous
  Country: BE (occurrence: BE)
  Receive Date: 20180319
  Receipt Date: 20180412
  Transmission Date: 20180711
  Serious: Yes (Other)
  Sender: FDA-Public Use
  Company Number: BE-BIOGEN-2018BI00542661

PATIENT
  Sex: Male

DRUGS (3)
  1. BETAHISTIDINE [Concomitant]
     Indication: PRODUCT USED FOR UNKNOWN INDICATION
     Route: 065
  2. TYSABRI [Suspect]
     Active Substance: NATALIZUMAB
     Indication: RELAPSING-REMITTING MULTIPLE SCLEROSIS
     Route: 065
  3. TYSABRI [Suspect]
     Active Substance: NATALIZUMAB
     Dosage: OFF LABEL USE
     Route: 042

REACTIONS (2)
  - Intraocular melanoma [Unknown]
  - Prescribed overdose [Unknown]
